FAERS Safety Report 15954133 (Version 4)
Quarter: 2019Q2

REPORT INFORMATION
  Report Type: Report from Study
  Country: US (occurrence: US)
  Receive Date: 20190212
  Receipt Date: 20190528
  Transmission Date: 20190711
  Serious: Yes (Hospitalization, Disabling)
  Sender: FDA-Public Use
  Company Number: US-ACTELION-A-US2019-186060

PATIENT
  Age: 65 Year
  Sex: Female
  Weight: 113.38 kg

DRUGS (3)
  1. OPSUMIT [Suspect]
     Active Substance: MACITENTAN
     Indication: PULMONARY ARTERIAL HYPERTENSION
     Dosage: 10 MG, QD
     Route: 048
  2. COUMADIN [Concomitant]
     Active Substance: WARFARIN SODIUM
  3. SILDENAFIL CITRATE. [Concomitant]
     Active Substance: SILDENAFIL CITRATE
     Dosage: 20 MG, TID

REACTIONS (9)
  - Pleural effusion [Recovering/Resolving]
  - Respiratory syncytial virus infection [Recovering/Resolving]
  - Chronic obstructive pulmonary disease [Recovering/Resolving]
  - Pneumonia [Unknown]
  - Sleep apnoea syndrome [Recovering/Resolving]
  - Respiratory failure [Recovering/Resolving]
  - Conjunctivitis [Recovering/Resolving]
  - Pulmonary arterial hypertension [Recovering/Resolving]
  - Dyspnoea [Recovering/Resolving]

NARRATIVE: CASE EVENT DATE: 20190129
